FAERS Safety Report 6257726-7 (Version None)
Quarter: 2009Q3

REPORT INFORMATION
  Report Type: 
  Country: None (occurrence: None)
  Receive Date: 20090706
  Receipt Date: 20090624
  Transmission Date: 20100115
  Serious: Yes (Death)
  Sender: FDA-Public Use
  Company Number: JP-ASTRAZENECA-2009SE03707

PATIENT
  Age: 89 Year
  Sex: Male

DRUGS (2)
  1. ECARD [Suspect]
     Indication: HYPERTENSION
     Route: 048
     Dates: start: 20090501, end: 20090601
  2. DECADRON [Suspect]
     Route: 042

REACTIONS (2)
  - CANDIDA SEPSIS [None]
  - PNEUMONIA [None]
